FAERS Safety Report 17290147 (Version 4)
Quarter: 2020Q4

REPORT INFORMATION
  Report Type: Report from Study
  Country: None (occurrence: US)
  Receive Date: 20200120
  Receipt Date: 20201003
  Transmission Date: 20210113
  Serious: Yes (Other)
  Sender: FDA-Public Use
  Company Number: US-ABBVIE-20K-163-3237336-00

PATIENT
  Age: 40 Year
  Sex: Female

DRUGS (2)
  1. PREDNISONE. [Suspect]
     Active Substance: PREDNISONE
     Indication: PRODUCT USED FOR UNKNOWN INDICATION
     Route: 048
  2. HUMIRA [Suspect]
     Active Substance: ADALIMUMAB
     Indication: UVEITIS
     Dosage: CITRATE FREE
     Route: 058
     Dates: start: 20190726

REACTIONS (21)
  - Cataract [Unknown]
  - Dizziness [Unknown]
  - Feeling abnormal [Unknown]
  - Venous injury [Unknown]
  - Surgery [Unknown]
  - Altered visual depth perception [Not Recovered/Not Resolved]
  - Insomnia [Unknown]
  - Vomiting [Unknown]
  - Headache [Unknown]
  - Intraocular pressure decreased [Not Recovered/Not Resolved]
  - Oedema [Unknown]
  - Fall [Unknown]
  - Procedural pain [Unknown]
  - Photophobia [Not Recovered/Not Resolved]
  - Migraine [Not Recovered/Not Resolved]
  - Visual impairment [Not Recovered/Not Resolved]
  - Weight increased [Unknown]
  - Nausea [Unknown]
  - Eye disorder [Unknown]
  - Contusion [Unknown]
  - Tension headache [Unknown]

NARRATIVE: CASE EVENT DATE: 202004
